FAERS Safety Report 12713274 (Version 2)
Quarter: 2016Q3

REPORT INFORMATION
  Report Type: Spontaneous
  Country: JP (occurrence: JP)
  Receive Date: 20160902
  Receipt Date: 20160908
  Transmission Date: 20161109
  Serious: Yes (Death, Life-Threatening, Other)
  Sender: FDA-Public Use
  Company Number: JP-ASTRAZENECA-2016SE91612

PATIENT
  Age: 67 Year
  Sex: Male

DRUGS (14)
  1. SULPERAZON [Concomitant]
     Active Substance: CEFOPERAZONE SODIUM\SULBACTAM SODIUM
     Dosage: DOSE UNKNOWN
     Route: 065
     Dates: start: 20130823
  2. CLARITIN [Concomitant]
     Active Substance: LORATADINE
     Dosage: DOSE UNKNOWN
     Route: 065
  3. VITAMEDIN [Concomitant]
     Active Substance: CYANOCOBALAMIN\PYRIDOXINE HYDROCHLORIDE\THIAMINE
     Dosage: DOSE UNKNOWN
     Route: 065
  4. CRAVIT [Suspect]
     Active Substance: LEVOFLOXACIN
     Dosage: DOSE UNKNOWN UNKNOWN
     Route: 048
     Dates: start: 20130927, end: 20131003
  5. KLARICID [Concomitant]
     Active Substance: CLARITHROMYCIN
     Indication: SPUTUM RETENTION
     Dosage: DOSE UNKNOWN
     Route: 065
     Dates: start: 20130917
  6. LOXOPROFEN [Suspect]
     Active Substance: LOXOPROFEN
     Dosage: 20 MG DAILY, AS REQUIRED
     Route: 048
     Dates: start: 20130913, end: 20131007
  7. SULPERAZON [Concomitant]
     Active Substance: CEFOPERAZONE SODIUM\SULBACTAM SODIUM
     Dosage: DOSE UNKNOWN
     Route: 065
     Dates: start: 20130913, end: 20130918
  8. BFLUID [Concomitant]
     Active Substance: AMINO ACIDS\DEXTROSE\ELECTROLYTES NOS\VITAMINS
     Dosage: DOSE UNKNOWN
     Route: 065
  9. MERISLON [Concomitant]
     Active Substance: BETAHISTINE MESILATE
     Dosage: DOSE UNKNOWN
     Route: 065
  10. ALLEGRA [Concomitant]
     Active Substance: FEXOFENADINE HYDROCHLORIDE
     Dosage: DOSE UNKNOWN
     Route: 065
  11. NEXIUM [Suspect]
     Active Substance: ESOMEPRAZOLE MAGNESIUM
     Route: 048
     Dates: start: 20130822, end: 20130918
  12. MUCOSOLVAN [Concomitant]
     Active Substance: AMBROXOL HYDROCHLORIDE
     Indication: SPUTUM RETENTION
     Dosage: DOSE UNKNOWN
     Route: 065
     Dates: start: 20130917
  13. CRAVIT [Suspect]
     Active Substance: LEVOFLOXACIN
     Dosage: 60.0MG UNKNOWN
     Route: 048
     Dates: start: 20130919, end: 20130924
  14. URSO [Concomitant]
     Active Substance: URSODIOL
     Dosage: DOSE UNKNOWN
     Route: 065
     Dates: start: 20130824, end: 20131003

REACTIONS (6)
  - Toxic epidermal necrolysis [Recovering/Resolving]
  - Disease progression [Fatal]
  - Septic shock [Unknown]
  - Klebsiella bacteraemia [Unknown]
  - Cholangitis [Not Recovered/Not Resolved]
  - Renal failure [Not Recovered/Not Resolved]

NARRATIVE: CASE EVENT DATE: 20130913
